FAERS Safety Report 10766176 (Version 7)
Quarter: 2015Q2

REPORT INFORMATION
  Report Type: Report from Study
  Country: US (occurrence: US)
  Receive Date: 20150205
  Receipt Date: 20150609
  Transmission Date: 20150821
  Serious: Yes (Congenital Anomaly)
  Sender: FDA-Public Use
  Company Number: US-SHIRE-US201403874

PATIENT
  Age: 20 Year
  Sex: Female
  Weight: 65.53 kg

DRUGS (15)
  1. PNV [Concomitant]
     Indication: PRODUCT USED FOR UNKNOWN INDICATION
     Dosage: UNK, UNKNOWN
     Route: 065
  2. ACETAMINOPHEN. [Concomitant]
     Active Substance: ACETAMINOPHEN
     Indication: TENSION HEADACHE
     Dosage: 500 MG, AS REQ^D
     Route: 048
     Dates: start: 20110304
  3. CRANBERRY                          /01512301/ [Concomitant]
     Indication: PREGNANCY
     Dosage: UNK UNK, UNKNOWN
     Route: 048
     Dates: start: 20141001
  4. 489 (LISDEXAMFETAMINE DIMESYLATE) [Suspect]
     Active Substance: LISDEXAMFETAMINE DIMESYLATE
     Indication: BINGE EATING
     Dosage: 70 MG, 1X/DAY:QD
     Route: 048
     Dates: start: 20140320, end: 20140708
  5. PRENATAL VITAMINS                  /07499601/ [Concomitant]
     Active Substance: VITAMINS
     Indication: PREGNANCY
     Dosage: 0.5 MG, 1X/DAY:QD
     Route: 048
  6. VALTRAX [Concomitant]
     Indication: PRODUCT USED FOR UNKNOWN INDICATION
     Dosage: UNK, 1X/DAY:QD
     Route: 065
  7. MAGNESIUM OXIDE. [Concomitant]
     Active Substance: MAGNESIUM OXIDE
     Indication: PREGNANCY
     Dosage: 400 MG, 1X/DAY:QD
     Route: 048
     Dates: start: 20141001
  8. CETIRIZINE [Concomitant]
     Active Substance: CETIRIZINE HYDROCHLORIDE
     Indication: SEASONAL ALLERGY
     Dosage: 10 MG, AS REQ^D
     Route: 048
     Dates: start: 20120801
  9. PSYLLIUM                           /01328801/ [Concomitant]
     Active Substance: PLANTAGO SEED
     Indication: PREGNANCY
     Dosage: UNK, UNKNOWN
     Route: 048
     Dates: start: 20141001
  10. FIBER [Concomitant]
     Active Substance: PSYLLIUM HUSK
     Indication: PREGNANCY
     Dosage: UNK, UNKNOWN
     Route: 048
     Dates: start: 20141001
  11. MAGNESIUM SULFATE. [Concomitant]
     Active Substance: MAGNESIUM SULFATE
     Indication: PRODUCT USED FOR UNKNOWN INDICATION
     Dosage: UNK, UNKNOWN
     Route: 065
     Dates: start: 20141001
  12. VALACYCLOVIR [Concomitant]
     Active Substance: VALACYCLOVIR HYDROCHLORIDE
     Indication: GENITAL HERPES
     Dosage: 1 G, 2X/DAY:BID
     Route: 048
     Dates: start: 20140505
  13. VALACYCLOVIR [Concomitant]
     Active Substance: VALACYCLOVIR HYDROCHLORIDE
     Dosage: 1 DF, 1X/DAY:QD
     Route: 065
     Dates: start: 20140828
  14. ACIDOPHILIS [Concomitant]
     Active Substance: LACTOBACILLUS ACIDOPHILUS
     Indication: PREGNANCY
     Dosage: UNK, UNKNOWN
     Route: 048
     Dates: start: 20141001
  15. VALACYCLOVIR [Concomitant]
     Active Substance: VALACYCLOVIR HYDROCHLORIDE
     Dosage: 500 MG, UNKNOWN
     Route: 065

REACTIONS (2)
  - Maternal exposure during pregnancy [Recovered/Resolved]
  - Congenital anomaly in offspring [Recovered/Resolved]

NARRATIVE: CASE EVENT DATE: 2014
